FAERS Safety Report 7389866-3 (Version None)
Quarter: 2011Q2

REPORT INFORMATION
  Report Type: 
  Country: None (occurrence: None)
  Receive Date: 20110401
  Receipt Date: 20110323
  Transmission Date: 20111010
  Serious: Yes (Other)
  Sender: FDA-Public Use
  Company Number: US-MYLANLABS-2011S1006144

PATIENT
  Age: 22 Year
  Sex: Female

DRUGS (2)
  1. CLOZAPINE [Suspect]
     Indication: SCHIZOPHRENIA
     Route: 048
  2. TOPIRAMATE [Concomitant]
     Indication: DEPRESSED MOOD

REACTIONS (1)
  - ACUTE MYELOID LEUKAEMIA [None]
